FAERS Safety Report 17549059 (Version 3)
Quarter: 2022Q1

REPORT INFORMATION
  Report Type: Spontaneous
  Country: PT (occurrence: PT)
  Receive Date: 20200317
  Receipt Date: 20220317
  Transmission Date: 20220424
  Serious: Yes (Other)
  Sender: FDA-Public Use
  Company Number: PT-002147023-NVSC2020PT049692

PATIENT
  Age: 39 Year
  Sex: Female

DRUGS (2)
  1. AMLODIPINE BESYLATE [Suspect]
     Active Substance: AMLODIPINE BESYLATE
     Indication: Secondary hypertension
     Dosage: 10 MILLIGRAM, ONCE A DAY
     Route: 048
  2. BISOPROLOL [Suspect]
     Active Substance: BISOPROLOL
     Indication: Secondary hypertension
     Dosage: 5 MILLIGRAM, ONCE A DAY
     Route: 048

REACTIONS (5)
  - Oedema peripheral [Unknown]
  - Pelvi-ureteric obstruction [Unknown]
  - Secondary hypertension [Unknown]
  - Intentional product misuse [Unknown]
  - Treatment noncompliance [Unknown]
